FAERS Safety Report 16248513 (Version 1)
Quarter: 2019Q2

REPORT INFORMATION
  Report Type: Spontaneous
  Country: US (occurrence: US)
  Receive Date: 20190429
  Receipt Date: 20190429
  Transmission Date: 20190711
  Serious: No
  Sender: FDA-Public Use
  Company Number: US-TEVA-2019-US-1036775

PATIENT
  Age: 54 Year
  Sex: Female

DRUGS (6)
  1. EFFEXOR XR [Concomitant]
     Active Substance: VENLAFAXINE HYDROCHLORIDE
  2. MODAFINIL. [Concomitant]
     Active Substance: MODAFINIL
  3. MULTIVITAMIN [Concomitant]
     Active Substance: VITAMINS
  4. VITAMIN D2 [Concomitant]
     Active Substance: ERGOCALCIFEROL
  5. COPAXONE [Suspect]
     Active Substance: GLATIRAMER ACETATE
     Indication: MULTIPLE SCLEROSIS
     Route: 058
     Dates: start: 20180404
  6. ARMOUR THYRO [Concomitant]

REACTIONS (1)
  - Fatigue [Not Recovered/Not Resolved]
